FAERS Safety Report 11112809 (Version 1)
Quarter: 2015Q2

REPORT INFORMATION
  Report Type: Spontaneous
  Country: JP (occurrence: JP)
  Receive Date: 20150514
  Receipt Date: 20150514
  Transmission Date: 20150821
  Serious: Yes (Hospitalization)
  Sender: FDA-Public Use
  Company Number: PHHY2015JP055487

PATIENT
  Sex: Male

DRUGS (3)
  1. AMPICILLIN [Suspect]
     Active Substance: AMPICILLIN
     Indication: PRODUCT USED FOR UNKNOWN INDICATION
     Dosage: 2 G, UNK
     Route: 064
  2. AMPICILLIN [Suspect]
     Active Substance: AMPICILLIN
     Dosage: 100 MG/KG, QD
     Route: 042
  3. AMPICILLIN [Suspect]
     Active Substance: AMPICILLIN
     Indication: CONGENITAL SYPHILIS
     Dosage: 50 MG/KG, QD
     Route: 042

REACTIONS (10)
  - Jarisch-Herxheimer reaction [Recovered/Resolved]
  - Rash maculo-papular [Recovering/Resolving]
  - Conjunctival hyperaemia [Recovered/Resolved]
  - Oedema genital [Recovered/Resolved]
  - Blister [Recovered/Resolved]
  - Tachypnoea [Recovered/Resolved]
  - Irritability [Recovered/Resolved]
  - Foetal exposure during pregnancy [Recovered/Resolved]
  - Fever neonatal [Recovered/Resolved]
  - Abdominal distension [Recovered/Resolved]
